APPROVED DRUG PRODUCT: LABETALOL HYDROCHLORIDE IN DEXTROSE
Active Ingredient: LABETALOL HYDROCHLORIDE
Strength: 200MG/200ML (1MG/ML)
Dosage Form/Route: SOLUTION;INTRAVENOUS
Application: N213330 | Product #001
Applicant: HIKMA PHARMACEUTICALS USA INC
Approved: Nov 9, 2020 | RLD: Yes | RS: Yes | Type: RX